FAERS Safety Report 13305393 (Version 1)
Quarter: 2017Q1

REPORT INFORMATION
  Report Type: Spontaneous
  Country: US (occurrence: US)
  Receive Date: 20170308
  Receipt Date: 20170308
  Transmission Date: 20170428
  Serious: No
  Sender: FDA-Public Use
  Company Number: US-PFIZER INC-2017011602

PATIENT
  Age: 47 Year
  Sex: Male

DRUGS (81)
  1. CAMPTOSAR [Suspect]
     Active Substance: IRINOTECAN HYDROCHLORIDE
     Indication: HEPATIC CANCER
     Dosage: 328 MG, UNK (DAY 1, CYCLE 18)
     Route: 042
     Dates: start: 20161108
  2. CAMPTOSAR [Suspect]
     Active Substance: IRINOTECAN HYDROCHLORIDE
     Dosage: 328 MG, UNK (ONCE)
     Route: 042
     Dates: start: 20161025, end: 20161025
  3. CAMPTOSAR [Suspect]
     Active Substance: IRINOTECAN HYDROCHLORIDE
     Dosage: 328 MG, UNK (ONCE)
     Route: 042
     Dates: start: 20161108, end: 20161108
  4. CAMPTOSAR [Suspect]
     Active Substance: IRINOTECAN HYDROCHLORIDE
     Dosage: 328 MG, UNK (ONCE)
     Route: 042
     Dates: start: 20170131, end: 20170131
  5. ATROPINE. [Concomitant]
     Active Substance: ATROPINE
     Dosage: 0.25 MG, UNK (DAY 1, CYCLE 20)
     Route: 042
     Dates: start: 20161206
  6. DECADRON [Concomitant]
     Active Substance: DEXAMETHASONE
     Dosage: 10 MG, UNK (DAY 1, CYCLE 19)
     Route: 042
     Dates: start: 20161122
  7. ALOXI [Concomitant]
     Active Substance: PALONOSETRON HYDROCHLORIDE
     Dosage: 0.25 MG, UNK (DAY 1, CYCLE 22)
     Route: 042
     Dates: start: 20170103
  8. NEULASTA [Concomitant]
     Active Substance: PEGFILGRASTIM
     Dosage: 6 MG, UNK (DAY 1, CYCLE 18)
     Route: 058
     Dates: start: 20161108
  9. CAMPTOSAR [Suspect]
     Active Substance: IRINOTECAN HYDROCHLORIDE
     Dosage: 328 MG, UNK (DAY 1, CYCLE 20)
     Route: 042
     Dates: start: 20161206
  10. CAMPTOSAR [Suspect]
     Active Substance: IRINOTECAN HYDROCHLORIDE
     Dosage: 328 MG, UNK (ONCE)
     Route: 042
     Dates: start: 20161122, end: 20161122
  11. CAMPTOSAR [Suspect]
     Active Substance: IRINOTECAN HYDROCHLORIDE
     Dosage: 328 MG, UNK (ONCE)
     Route: 042
     Dates: start: 20170214, end: 20170214
  12. CAMPTOSAR [Suspect]
     Active Substance: IRINOTECAN HYDROCHLORIDE
     Dosage: 328 MG, UNK (ONCE)
     Route: 042
     Dates: start: 20160913, end: 20160913
  13. CAMPTOSAR [Suspect]
     Active Substance: IRINOTECAN HYDROCHLORIDE
     Dosage: 328 MG, UNK (ONCE)
     Route: 042
     Dates: start: 20170117, end: 20170117
  14. ATROPINE. [Concomitant]
     Active Substance: ATROPINE
     Dosage: 0.25 MG, UNK (DAY 1, CYCLE 18)
     Route: 042
     Dates: start: 20161108
  15. AVASTIN [Concomitant]
     Active Substance: BEVACIZUMAB
     Dosage: 357 MG, UNK (DAY 1, CYCLE 19)
     Route: 042
     Dates: start: 20161122
  16. BENADRYL [Concomitant]
     Active Substance: DIPHENHYDRAMINE HYDROCHLORIDE
     Dosage: 25 MG, UNK (DAY 1, CYCLE 19)
     Route: 048
     Dates: start: 20161122
  17. NORMAL SALINE [Concomitant]
     Active Substance: SODIUM CHLORIDE
     Dosage: 85.7 ML, UNK (DAY 1, CYCLE 19)
     Route: 042
     Dates: start: 20161122
  18. DIPHENOXYLATE/ATROPINE [Concomitant]
     Active Substance: ATROPINE\DIPHENOXYLATE
     Dosage: 1 DF, AS NEEDED (DAY 1, CYCLE 19) [QID PRN (2)]
     Dates: start: 20161122
  19. HYOSCYAMINE. [Concomitant]
     Active Substance: HYOSCYAMINE
     Dosage: UNK UNK, AS NEEDED (DAY 1, CYCLE 19) [4 DROP Q4H PRN]
     Dates: start: 20161122
  20. HYOSCYAMINE. [Concomitant]
     Active Substance: HYOSCYAMINE
     Dosage: UNK UNK, AS NEEDED (DAY 1, CYCLE 20) [4 DROP Q4H PRN]
     Dates: start: 20161206
  21. CAMPTOSAR [Suspect]
     Active Substance: IRINOTECAN HYDROCHLORIDE
     Dosage: 328 MG, UNK (DAY 1, CYCLE 21)
     Route: 042
     Dates: start: 20161220
  22. CAMPTOSAR [Suspect]
     Active Substance: IRINOTECAN HYDROCHLORIDE
     Dosage: 328 MG, UNK (ONCE)
     Route: 042
     Dates: start: 20161206, end: 20161206
  23. AVASTIN [Concomitant]
     Active Substance: BEVACIZUMAB
     Dosage: 357 MG, UNK (DAY 1, CYCLE 20)
     Route: 042
     Dates: start: 20161206
  24. DEXTROSE IN WATER [Concomitant]
     Active Substance: DEXTROSE\WATER
     Dosage: 250 ML, UNK (DAY 1, CYCLE 18)
     Route: 042
     Dates: start: 20161108
  25. HEPARIN PORCINE [Concomitant]
     Dosage: 100 IU, UNK (DAY 1, CYCLE 22)
     Dates: start: 20170103
  26. NORMAL SALINE [Concomitant]
     Active Substance: SODIUM CHLORIDE
     Dosage: 85.7 ML, UNK (DAY 1, CYCLE 18)
     Route: 042
     Dates: start: 20161108
  27. HYOSCYAMINE. [Concomitant]
     Active Substance: HYOSCYAMINE
     Dosage: UNK UNK, AS NEEDED (DAY 1, CYCLE 18) [4 DROP Q4H PRN]
     Dates: start: 20161108
  28. HYOSCYAMINE. [Concomitant]
     Active Substance: HYOSCYAMINE
     Dosage: UNK UNK, AS NEEDED (DAY 1, CYCLE 22) [4 DROP Q4H PRN]
     Dates: start: 20170103
  29. CAMPTOSAR [Suspect]
     Active Substance: IRINOTECAN HYDROCHLORIDE
     Dosage: 328 MG, UNK (ONCE)
     Route: 042
     Dates: start: 20160830, end: 20160830
  30. CAMPTOSAR [Suspect]
     Active Substance: IRINOTECAN HYDROCHLORIDE
     Dosage: 328 MG, UNK (ONCE)
     Route: 042
     Dates: start: 20161220, end: 20161220
  31. TYLENOL [Concomitant]
     Active Substance: ACETAMINOPHEN
     Dosage: 650 MG, UNK (DAY 1, CYCLE 21)
     Route: 048
     Dates: start: 20161220
  32. DEXTROSE IN WATER [Concomitant]
     Active Substance: DEXTROSE\WATER
     Dosage: 250 ML, UNK (DAY 1, CYCLE 21)
     Route: 042
     Dates: start: 20161220
  33. DECADRON [Concomitant]
     Active Substance: DEXAMETHASONE
     Dosage: 10 MG, UNK (DAY 1, CYCLE 20)
     Route: 042
     Dates: start: 20161206
  34. HEPARIN PORCINE [Concomitant]
     Dosage: 300 IU, UNK (DAY 1, CYCLE 20)
     Dates: start: 20161206
  35. NORMAL SALINE [Concomitant]
     Active Substance: SODIUM CHLORIDE
     Dosage: 85.7 ML, UNK (DAY 1, CYCLE 20)
     Route: 042
     Dates: start: 20161206
  36. NEULASTA [Concomitant]
     Active Substance: PEGFILGRASTIM
     Dosage: 6 MG, UNK (DAY 1, CYCLE 19)
     Route: 058
     Dates: start: 20161122
  37. NEULASTA [Concomitant]
     Active Substance: PEGFILGRASTIM
     Dosage: 6 MG, UNK (DAY 1, CYCLE 22)
     Route: 058
     Dates: start: 20170103
  38. DIPHENOXYLATE/ATROPINE [Concomitant]
     Active Substance: ATROPINE\DIPHENOXYLATE
     Dosage: 1 DF, AS NEEDED (DAY 1, CYCLE 18) [QID PRN (2)]
     Dates: start: 20161108
  39. CAMPTOSAR [Suspect]
     Active Substance: IRINOTECAN HYDROCHLORIDE
     Dosage: 328 MG, UNK (ONCE)
     Route: 042
     Dates: start: 20170103, end: 20170103
  40. TYLENOL [Concomitant]
     Active Substance: ACETAMINOPHEN
     Dosage: 650 MG, UNK (DAY 1, CYCLE 19)
     Route: 048
     Dates: start: 20161122
  41. TYLENOL [Concomitant]
     Active Substance: ACETAMINOPHEN
     Dosage: 650 MG, UNK (DAY 1, CYCLE 22)
     Route: 048
     Dates: start: 20170103
  42. DEXTROSE IN WATER [Concomitant]
     Active Substance: DEXTROSE\WATER
     Dosage: 250 ML, UNK (DAY 1, CYCLE 19)
     Route: 042
     Dates: start: 20161122
  43. HEPARIN PORCINE [Concomitant]
     Dosage: 3 IU, UNK (DAY 1, CYCLE 21)
     Dates: start: 20161220
  44. DIPHENOXYLATE/ATROPINE [Concomitant]
     Active Substance: ATROPINE\DIPHENOXYLATE
     Dosage: 1 DF, AS NEEDED (DAY 1, CYCLE 21) [QID PRN (2)]
     Dates: start: 20161220
  45. DIPHENOXYLATE/ATROPINE [Concomitant]
     Active Substance: ATROPINE\DIPHENOXYLATE
     Dosage: 1 DF, AS NEEDED (DAY 1, CYCLE 22) [QID PRN (2)]
     Dates: start: 20170103
  46. HYOSCYAMINE. [Concomitant]
     Active Substance: HYOSCYAMINE
     Dosage: UNK UNK, AS NEEDED (DAY 1, CYCLE 21) [4 DROP Q4H PRN]
     Dates: start: 20161220
  47. CAMPTOSAR [Suspect]
     Active Substance: IRINOTECAN HYDROCHLORIDE
     Dosage: 328 MG, UNK (DAY 1, CYCLE 22)
     Route: 042
     Dates: start: 20170103
  48. TYLENOL [Concomitant]
     Active Substance: ACETAMINOPHEN
     Dosage: 650 MG, UNK (DAY 1, CYCLE 20)
     Route: 048
     Dates: start: 20161206
  49. DECADRON [Concomitant]
     Active Substance: DEXAMETHASONE
     Dosage: 10 MG, UNK (DAY 1, CYCLE 18)
     Route: 042
     Dates: start: 20161108
  50. DECADRON [Concomitant]
     Active Substance: DEXAMETHASONE
     Dosage: 10 MG, UNK (DAY 1, CYCLE 21)
     Route: 042
     Dates: start: 20161220
  51. ALOXI [Concomitant]
     Active Substance: PALONOSETRON HYDROCHLORIDE
     Dosage: 0.25 MG, UNK (DAY 1, CYCLE 20)
     Route: 042
     Dates: start: 20161206
  52. ALOXI [Concomitant]
     Active Substance: PALONOSETRON HYDROCHLORIDE
     Dosage: 0.25 MG, UNK (DAY 1, CYCLE 21)
     Route: 042
     Dates: start: 20161220
  53. NEULASTA [Concomitant]
     Active Substance: PEGFILGRASTIM
     Dosage: 6 MG, UNK (DAY 1, CYCLE 21)
     Route: 058
     Dates: start: 20161220
  54. DIPHENOXYLATE/ATROPINE [Concomitant]
     Active Substance: ATROPINE\DIPHENOXYLATE
     Dosage: 1 DF, AS NEEDED (2 MO) [QID PRN (2)]
     Dates: start: 20161103
  55. DIPHENOXYLATE/ATROPINE [Concomitant]
     Active Substance: ATROPINE\DIPHENOXYLATE
     Dosage: 1 DF, AS NEEDED (DAY 1, CYCLE 20) [QID PRN (2)]
     Dates: start: 20161206
  56. HYOSCYAMINE. [Concomitant]
     Active Substance: HYOSCYAMINE
     Dosage: UNK UNK, AS NEEDED (2 MO) [4 DROP Q4H PRN]
     Dates: start: 20161103
  57. LANSOPRAZOLE. [Concomitant]
     Active Substance: LANSOPRAZOLE
     Dosage: UNK
  58. CAMPTOSAR [Suspect]
     Active Substance: IRINOTECAN HYDROCHLORIDE
     Dosage: 328 MG, UNK (ONCE)
     Route: 042
     Dates: start: 20160927, end: 20160927
  59. CAMPTOSAR [Suspect]
     Active Substance: IRINOTECAN HYDROCHLORIDE
     Dosage: 328 MG, UNK (ONCE)
     Route: 042
     Dates: start: 20161011, end: 20161011
  60. TYLENOL [Concomitant]
     Active Substance: ACETAMINOPHEN
     Dosage: 650 MG, UNK (DAY 1, CYCLE 18)
     Route: 048
     Dates: start: 20161108
  61. AVASTIN [Concomitant]
     Active Substance: BEVACIZUMAB
     Dosage: 357 MG, UNK (DAY 1, CYCLE 22)
     Route: 042
     Dates: start: 20170103
  62. DEXTROSE IN WATER [Concomitant]
     Active Substance: DEXTROSE\WATER
     Dosage: 250 ML, UNK (DAY 1, CYCLE 20)
     Route: 042
     Dates: start: 20161206
  63. DEXTROSE IN WATER [Concomitant]
     Active Substance: DEXTROSE\WATER
     Dosage: 500 ML, UNK (DAY 1, CYCLE 22)
     Route: 042
     Dates: start: 20170103
  64. BENADRYL [Concomitant]
     Active Substance: DIPHENHYDRAMINE HYDROCHLORIDE
     Dosage: 25 MG, UNK (DAY 1, CYCLE 20)
     Route: 048
     Dates: start: 20161206
  65. HEPARIN PORCINE [Concomitant]
     Dosage: 100 IU, UNK (DAY 1, CYCLE 19)
     Dates: start: 20161122
  66. NORMAL SALINE [Concomitant]
     Active Substance: SODIUM CHLORIDE
     Dosage: 100 ML, UNK  (DAY 1, CYCLE 22)
     Route: 042
     Dates: start: 20170103
  67. ALOXI [Concomitant]
     Active Substance: PALONOSETRON HYDROCHLORIDE
     Dosage: 0.25 MG, UNK (DAY 1, CYCLE 18)
     Route: 042
     Dates: start: 20161108
  68. ALOXI [Concomitant]
     Active Substance: PALONOSETRON HYDROCHLORIDE
     Dosage: 0.25 MG, UNK (DAY 1, CYCLE 19)
     Route: 042
     Dates: start: 20161122
  69. CAMPTOSAR [Suspect]
     Active Substance: IRINOTECAN HYDROCHLORIDE
     Dosage: 328 MG, UNK (DAY 1, CYCLE 19)
     Route: 042
     Dates: start: 20161122
  70. ATROPINE. [Concomitant]
     Active Substance: ATROPINE
     Dosage: 0.25 MG, UNK (DAY 1, CYCLE 19)
     Route: 042
     Dates: start: 20161122
  71. ATROPINE. [Concomitant]
     Active Substance: ATROPINE
     Dosage: 0.25 MG, UNK (DAY 1, CYCLE 21)
     Route: 042
     Dates: start: 20161220
  72. ATROPINE. [Concomitant]
     Active Substance: ATROPINE
     Dosage: 0.25 MG, UNK (DAY 1, CYCLE 22)
     Route: 042
     Dates: start: 20170103
  73. AVASTIN [Concomitant]
     Active Substance: BEVACIZUMAB
     Dosage: 357 MG, UNK (DAY 1, CYCLE 18)
     Route: 042
     Dates: start: 20161108
  74. AVASTIN [Concomitant]
     Active Substance: BEVACIZUMAB
     Dosage: 357 MG, UNK (DAY 1, CYCLE 21)
     Route: 042
     Dates: start: 20161220
  75. DECADRON [Concomitant]
     Active Substance: DEXAMETHASONE
     Dosage: 10 MG, UNK (DAY 1, CYCLE 22)
     Route: 042
     Dates: start: 20170103
  76. BENADRYL [Concomitant]
     Active Substance: DIPHENHYDRAMINE HYDROCHLORIDE
     Dosage: 25 MG, UNK (DAY 1, CYCLE 18)
     Route: 048
     Dates: start: 20161108
  77. BENADRYL [Concomitant]
     Active Substance: DIPHENHYDRAMINE HYDROCHLORIDE
     Dosage: 25 MG, UNK (DAY 1, CYCLE 21)
     Route: 048
     Dates: start: 20161220
  78. BENADRYL [Concomitant]
     Active Substance: DIPHENHYDRAMINE HYDROCHLORIDE
     Dosage: 25 MG, UNK (DAY 1, CYCLE 22)
     Route: 048
     Dates: start: 20170103
  79. HEPARIN PORCINE [Concomitant]
     Dosage: 300 IU, UNK (DAY 1, CYCLE 18)
     Dates: start: 20161108
  80. NORMAL SALINE [Concomitant]
     Active Substance: SODIUM CHLORIDE
     Dosage: 100 ML, UNK  (DAY 1, CYCLE 21)
     Route: 042
     Dates: start: 20161220
  81. NEULASTA [Concomitant]
     Active Substance: PEGFILGRASTIM
     Dosage: 6 MG, UNK (DAY 1, CYCLE 20)
     Route: 058
     Dates: start: 20161206

REACTIONS (1)
  - Neoplasm progression [Unknown]
